FAERS Safety Report 11931943 (Version 3)
Quarter: 2016Q3

REPORT INFORMATION
  Report Type: Spontaneous
  Country: US (occurrence: US)
  Receive Date: 20160120
  Receipt Date: 20160808
  Transmission Date: 20161109
  Serious: Yes (Death, Hospitalization)
  Sender: FDA-Public Use
  Company Number: US-PFIZER INC-2015477708

PATIENT
  Age: 56 Year
  Sex: Female
  Weight: 66.81 kg

DRUGS (9)
  1. DEXAMETHASONE. [Concomitant]
     Active Substance: DEXAMETHASONE
     Indication: ABDOMINAL DISCOMFORT
     Dosage: 4 MG, 2X/DAY
     Dates: start: 20160531
  2. MORPHINE [Concomitant]
     Active Substance: MORPHINE
     Indication: FEELING ABNORMAL
     Dosage: UNK UNK, AS NEEDED (15 MG HALF TABLET AS NEEDED) (QUICK RELEASE TABLET)
     Dates: start: 201606
  3. LETROZOLE. [Concomitant]
     Active Substance: LETROZOLE
     Indication: BREAST CANCER
     Dosage: 2.5 MG, 1X/DAY
     Dates: start: 20151017, end: 201605
  4. PROMETHEGAN [Concomitant]
     Active Substance: PROMETHAZINE HYDROCHLORIDE
     Indication: NAUSEA
     Dosage: 25 MG, AS NEEDED (25 MG SUPPOSITORY FOUR TIMES A DAY AS NEEDED)
     Dates: start: 20160527
  5. IBRANCE [Suspect]
     Active Substance: PALBOCICLIB
     Dosage: 125 MG, 1X/DAY
     Dates: start: 20151023, end: 201605
  6. PROTONIX [Concomitant]
     Active Substance: PANTOPRAZOLE SODIUM
     Indication: ANTACID THERAPY
     Dosage: 40 MG, 1X/DAY
     Dates: start: 20160526
  7. LOVENOX [Concomitant]
     Active Substance: ENOXAPARIN SODIUM
     Indication: DEEP VEIN THROMBOSIS
     Dosage: 0.7 MG, 2X/DAY
     Dates: start: 20160619
  8. IBRANCE [Suspect]
     Active Substance: PALBOCICLIB
     Indication: INVASIVE DUCTAL BREAST CARCINOMA
     Dosage: 125 MG, 1X/DAY
     Route: 048
     Dates: start: 20151028
  9. METOCLOPRAMIDE. [Concomitant]
     Active Substance: METOCLOPRAMIDE
     Indication: NAUSEA
     Dosage: 10 MG, AS NEEDED (10 MG EVERY SIX HOURS FOUR TIMES AS NEEDED)
     Dates: start: 20160604

REACTIONS (13)
  - Invasive ductal breast carcinoma [Fatal]
  - Lung carcinoma cell type unspecified stage IV [Fatal]
  - White blood cell count decreased [Not Recovered/Not Resolved]
  - Pulmonary embolism [Fatal]
  - Gastric ulcer [Unknown]
  - Vena cava thrombosis [Unknown]
  - Eating disorder [Unknown]
  - Disease progression [Fatal]
  - Weight decreased [Unknown]
  - Second primary malignancy [Fatal]
  - Oedema peripheral [Unknown]
  - Weight increased [Unknown]
  - Peripheral swelling [Not Recovered/Not Resolved]

NARRATIVE: CASE EVENT DATE: 20151201
